FAERS Safety Report 8173716-1 (Version None)
Quarter: 2012Q1

REPORT INFORMATION
  Report Type: 
  Country: None (occurrence: None)
  Receive Date: 20120229
  Receipt Date: 20120221
  Transmission Date: 20120608
  Serious: Yes (Death, Hospitalization)
  Sender: FDA-Public Use
  Company Number: US-ACTELION-A-US2012-59536

PATIENT

DRUGS (3)
  1. TRACLEER [Suspect]
     Indication: PULMONARY ARTERIAL HYPERTENSION
     Dosage: UNK
     Route: 048
     Dates: start: 20050802, end: 20120201
  2. COUMADIN [Concomitant]
  3. OXYGEN [Concomitant]

REACTIONS (7)
  - DYSPNOEA [None]
  - INTERNATIONAL NORMALISED RATIO INCREASED [None]
  - PULMONARY ARTERIAL HYPERTENSION [None]
  - COR PULMONALE [None]
  - BLOOD CREATININE ABNORMAL [None]
  - ASTHENIA [None]
  - CHRONIC RESPIRATORY FAILURE [None]
